FAERS Safety Report 21275570 (Version 1)
Quarter: 2022Q3

REPORT INFORMATION
  Report Type: Report from Study
  Country: US (occurrence: US)
  Receive Date: 20220831
  Receipt Date: 20220831
  Transmission Date: 20221027
  Serious: No
  Sender: FDA-Public Use
  Company Number: US-SHIONOGI, INC-2022000607

PATIENT
  Age: 29 Year
  Sex: Male
  Weight: 71.8 kg

DRUGS (3)
  1. CEFIDEROCOL [Suspect]
     Active Substance: CEFIDEROCOL
     Indication: Drug interaction
     Dosage: 2 G, TID
     Route: 042
     Dates: start: 20220618, end: 20220622
  2. CEFIDEROCOL [Suspect]
     Active Substance: CEFIDEROCOL
     Dosage: 2 G, BID
     Route: 042
     Dates: start: 20220623, end: 20220623
  3. MIDAZOLAM [Suspect]
     Active Substance: MIDAZOLAM
     Indication: Drug interaction
     Dosage: 5 MG, QD
     Route: 048
     Dates: start: 20220617, end: 20220617

REACTIONS (2)
  - Hepatic enzyme increased [Recovering/Resolving]
  - Blood lactate dehydrogenase increased [Recovering/Resolving]

NARRATIVE: CASE EVENT DATE: 20220622
